FAERS Safety Report 21509015 (Version 1)
Quarter: 2022Q4

REPORT INFORMATION
  Report Type: Other
  Country: CA (occurrence: None)
  Receive Date: 20221026
  Receipt Date: 20221026
  Transmission Date: 20230113
  Serious: Yes (Other)
  Sender: FDA-Public Use
  Company Number: CA-ROCHE-3203577

PATIENT
  Age: 75 Year
  Sex: Female

DRUGS (4)
  1. ACTEMRA [Suspect]
     Active Substance: TOCILIZUMAB
     Indication: Rheumatoid arthritis
     Route: 042
     Dates: start: 20221018
  2. FOLIC ACID [Concomitant]
     Active Substance: FOLIC ACID
  3. PLAQUENIL [Concomitant]
     Active Substance: HYDROXYCHLOROQUINE SULFATE
  4. METHOTREXATE [Concomitant]
     Active Substance: METHOTREXATE

REACTIONS (3)
  - Blood pressure systolic increased [Unknown]
  - Blood pressure fluctuation [Unknown]
  - Weight increased [Unknown]

NARRATIVE: CASE EVENT DATE: 20221018
